FAERS Safety Report 7504180-0 (Version None)
Quarter: 2011Q2

REPORT INFORMATION
  Report Type: 
  Country: None (occurrence: None)
  Receive Date: 20110525
  Receipt Date: 20110512
  Transmission Date: 20111010
  Serious: Yes (Hospitalization, Other)
  Sender: FDA-Public Use
  Company Number: US-ELI_LILLY_AND_COMPANY-US201006003449

PATIENT
  Sex: Male

DRUGS (16)
  1. ASPIRIN [Concomitant]
     Dosage: 81 MG, EACH MORNING
  2. PLAVIX [Concomitant]
     Dosage: 75 MG, EACH MORNING
  3. THYROID TAB [Concomitant]
     Dosage: 2.5 G, EACH MORNING
  4. GLUCOSAMINE/MSM [Concomitant]
     Dosage: 1 DF, BID
  5. LEXAPRO [Concomitant]
     Dosage: 20 MG, EACH EVENING
  6. MAGNESIUM SULFATE [Concomitant]
  7. OMEPRAZOLE [Concomitant]
     Dosage: 20.6 DF, EACH MORNING
  8. NORVASC [Concomitant]
     Dosage: 5 MG, EACH EVENING
  9. FORTEO [Suspect]
     Indication: OSTEOPOROSIS
     Dosage: 20 UG, QD
     Route: 065
     Dates: start: 20091101
  10. FORTEO [Suspect]
     Dosage: 20 UG, QD
  11. PAVACOL [Concomitant]
     Dosage: 40 MG, EACH EVENING
  12. NIACIN [Concomitant]
     Dosage: 900 MG, EACH EVENING
  13. TOPROL-XL [Concomitant]
     Dosage: 12.5 MG, EACH EVENING
  14. COQ10 [Concomitant]
     Dosage: 200 MG, EACH MORNING
  15. ACURATE [Concomitant]
     Indication: EYE DISORDER
     Dosage: 1 DF, BID
  16. FISH OIL [Concomitant]
     Dosage: 2000 DF, BID

REACTIONS (5)
  - POSTOPERATIVE WOUND INFECTION [None]
  - MUSCULAR WEAKNESS [None]
  - CHEST PAIN [None]
  - FATIGUE [None]
  - CORONARY ARTERY OCCLUSION [None]
